FAERS Safety Report 5917750-8 (Version None)
Quarter: 2008Q4

REPORT INFORMATION
  Report Type: 
  Country: None (occurrence: None)
  Receive Date: 20081014
  Receipt Date: 20081007
  Transmission Date: 20090506
  Serious: Yes (Hospitalization)
  Sender: FDA-Public Use
  Company Number: US-BAYER-200812922BCC

PATIENT
  Age: 87 Year
  Sex: Female
  Weight: 54 kg

DRUGS (2)
  1. ASPIRIN [Suspect]
     Indication: DRUG USE FOR UNKNOWN INDICATION
     Dosage: TOTAL DAILY DOSE: 81 MG  UNIT DOSE: 81 MG
     Route: 048
  2. MONOPRIL [Concomitant]

REACTIONS (7)
  - ABDOMINAL PAIN UPPER [None]
  - DIARRHOEA [None]
  - DYSPNOEA [None]
  - FAECES DISCOLOURED [None]
  - GAIT DISTURBANCE [None]
  - PALPITATIONS [None]
  - RENAL DISORDER [None]
